FAERS Safety Report 8319359-8 (Version None)
Quarter: 2012Q2

REPORT INFORMATION
  Report Type: 
  Country: None (occurrence: None)
  Receive Date: 20120427
  Receipt Date: 20120424
  Transmission Date: 20120825
  Serious: Yes (Death, Hospitalization)
  Sender: FDA-Public Use
  Company Number: FR-BRISTOL-MYERS SQUIBB COMPANY-16547200

PATIENT
  Age: 78 Year
  Sex: Female

DRUGS (13)
  1. BISOPROLOL FUMARATE [Concomitant]
  2. SPIRIVA [Concomitant]
  3. ATORVASTATIN [Concomitant]
  4. COUMADIN [Suspect]
     Indication: ATRIAL FIBRILLATION
     Route: 048
     Dates: end: 20120223
  5. LANTUS [Concomitant]
  6. NEXIUM [Concomitant]
  7. POLYETHYLENE GLYCOL [Concomitant]
  8. LASIX [Concomitant]
  9. ALDACTONE [Concomitant]
  10. PULMICORT [Concomitant]
  11. RAMIPRIL [Concomitant]
  12. ACETAMINOPHEN [Concomitant]
  13. FERROUS SULFATE TAB [Concomitant]

REACTIONS (5)
  - INTERNATIONAL NORMALISED RATIO INCREASED [None]
  - CEREBRAL HAEMATOMA [None]
  - FALL [None]
  - CEREBELLAR HAEMATOMA [None]
  - MALAISE [None]
